FAERS Safety Report 5044468-9 (Version None)
Quarter: 2006Q3

REPORT INFORMATION
  Report Type: 
  Country: None (occurrence: None)
  Receive Date: 20060706
  Receipt Date: 20060705
  Transmission Date: 20061208
  Serious: Yes (Other)
  Sender: FDA-Public Use
  Company Number: US-GLAXOSMITHKLINE-A0611154A

PATIENT
  Age: 2 Week
  Sex: Female

DRUGS (3)
  1. COREG [Suspect]
     Indication: DRUG USE FOR UNKNOWN INDICATION
  2. LANOXIN [Suspect]
     Indication: DRUG USE FOR UNKNOWN INDICATION
  3. NO CONCURRENT MEDICATION [Concomitant]

REACTIONS (4)
  - ABDOMINAL PAIN [None]
  - CARDIOMYOPATHY [None]
  - CRYING [None]
  - DRUG EXPOSURE DURING PREGNANCY [None]
